FAERS Safety Report 6611422-2 (Version None)
Quarter: 2010Q1

REPORT INFORMATION
  Report Type: 
  Country: None (occurrence: None)
  Receive Date: 20100218
  Receipt Date: 20100103
  Transmission Date: 20100710
  Serious: Yes (Other)
  Sender: FDA-Public Use
  Company Number: WAES 1001USA00067

PATIENT
  Sex: 0

DRUGS (1)
  1. ISENTRESS [Suspect]
     Indication: HIV INFECTION
     Dosage: PO
     Route: 048

REACTIONS (2)
  - EOSINOPHILIA [None]
  - RASH [None]
